FAERS Safety Report 7618104-9 (Version None)
Quarter: 2011Q3

REPORT INFORMATION
  Report Type: 
  Country: None (occurrence: None)
  Receive Date: 20110718
  Receipt Date: 20110711
  Transmission Date: 20111222
  Serious: Yes (Other)
  Sender: FDA-Public Use
  Company Number: US-B.I. PHARMACEUTICALS,INC./RIDGEFIELD-2011-BP-13426BP

PATIENT
  Sex: Male

DRUGS (17)
  1. VERAPAMIL [Concomitant]
     Dosage: 120 MG
  2. TRAMADOL HCL [Concomitant]
     Dosage: 100 MG
  3. PRADAXA [Suspect]
     Dosage: 220 MG
     Dates: end: 20110612
  4. SKELAXIN [Concomitant]
     Indication: MUSCLE SPASMS
  5. VIT D + C [Concomitant]
  6. VIT D + C [Concomitant]
  7. SYNTHROID [Concomitant]
  8. SPIRONOLACTONE [Concomitant]
  9. NAPROXEN [Concomitant]
     Indication: ARTHRITIS
  10. PRADAXA [Suspect]
     Indication: ATRIAL FIBRILLATION
     Dosage: 300 MG
     Route: 048
     Dates: start: 20110422, end: 20110427
  11. SIMVASTATIN [Concomitant]
     Dosage: 20 MG
  12. ALLOPURINOL [Concomitant]
     Dosage: 100 MG
  13. FUROSEMIDE [Concomitant]
     Dosage: 20 MG
  14. ALDACTONE [Concomitant]
     Dosage: 25 MG
  15. LEVOTHYROXINE SODIUM [Concomitant]
  16. FOLIC ACID [Concomitant]
     Dosage: 1 MG
  17. FERROUS SUL TAB [Concomitant]

REACTIONS (2)
  - EPISTAXIS [None]
  - SKIN CANCER [None]
